FAERS Safety Report 4819897-6 (Version None)
Quarter: 2005Q4

REPORT INFORMATION
  Report Type: 
  Country: None (occurrence: None)
  Receive Date: 20051102
  Receipt Date: 20051025
  Transmission Date: 20060501
  Serious: Yes (Hospitalization, Other)
  Sender: FDA-Public Use
  Company Number: 2005147929

PATIENT
  Sex: Female

DRUGS (1)
  1. LYRICA [Suspect]
     Indication: PAIN
     Dosage: 25 MG (25 MG, 3 IN 1 WK), ORAL
     Route: 048
     Dates: start: 20050630, end: 20050801

REACTIONS (7)
  - BEDRIDDEN [None]
  - ORAL INTAKE REDUCED [None]
  - PAIN [None]
  - POISONING [None]
  - RENAL IMPAIRMENT [None]
  - ROAD TRAFFIC ACCIDENT [None]
  - SPEECH DISORDER [None]
